FAERS Safety Report 14901105 (Version 7)
Quarter: 2018Q3

REPORT INFORMATION
  Report Type: Report from Study
  Country: IL (occurrence: IL)
  Receive Date: 20180516
  Receipt Date: 20180817
  Transmission Date: 20181010
  Serious: Yes (Hospitalization, Other)
  Sender: FDA-Public Use
  Company Number: IL-ACTELION-A-CH2018-172197

PATIENT
  Age: 64 Year
  Sex: Female
  Weight: 65 kg

DRUGS (33)
  1. BERAPROST [Concomitant]
     Active Substance: BERAPROST
     Indication: PULMONARY ARTERIAL HYPERTENSION
  2. CADEX [Concomitant]
     Dosage: 1 MG, UNK
     Dates: start: 20180313
  3. TAMIFLU [Concomitant]
     Active Substance: OSELTAMIVIR PHOSPHATE
     Dosage: UNK
     Dates: start: 20180122, end: 20180127
  4. PRAMIN [Concomitant]
     Dosage: UNK
     Dates: start: 20180313, end: 20180313
  5. UPTRAVI [Suspect]
     Active Substance: SELEXIPAG
     Dosage: 400 MCG, BID
     Route: 048
     Dates: start: 20180511, end: 20180516
  6. TADALAFIL [Concomitant]
     Active Substance: TADALAFIL
     Dosage: UNK
     Dates: start: 20170727, end: 20180122
  7. ZINNAT [Concomitant]
     Active Substance: CEFUROXIME AXETIL
     Dosage: UNK
     Dates: start: 20171017, end: 20171021
  8. CALCIUM SANDOZ [Concomitant]
     Active Substance: CALCIUM
     Dosage: UNK
     Dates: start: 20180128, end: 20180129
  9. ZANTAC [Concomitant]
     Active Substance: RANITIDINE HYDROCHLORIDE
     Dosage: UNK
     Dates: start: 20180313, end: 20180313
  10. REVATIO [Concomitant]
     Active Substance: SILDENAFIL CITRATE
     Dosage: UNK
     Dates: start: 201604, end: 20170726
  11. OMEPRADEX [Concomitant]
     Active Substance: OMEPRAZOLE
  12. ZAROXOLYN [Concomitant]
     Active Substance: METOLAZONE
     Dosage: 5 MG, UNK
     Dates: start: 20180323
  13. AEROVENT [Concomitant]
     Dosage: UNK
     Dates: start: 20171017, end: 20171018
  14. VECTOR [Concomitant]
     Dosage: 80 MG, UNK
     Dates: start: 2016
  15. IPRATROPIUM BROMIDE. [Concomitant]
     Active Substance: IPRATROPIUM BROMIDE
     Dosage: UNK
     Route: 055
     Dates: start: 20180123, end: 20180129
  16. ALFACALCIDOL [Concomitant]
     Active Substance: ALFACALCIDOL
     Dosage: 0.25 UNK, UNK
  17. TYVASO [Concomitant]
     Active Substance: TREPROSTINIL
     Indication: PULMONARY ARTERIAL HYPERTENSION
  18. CADEX [Concomitant]
     Dosage: 1 MG, UNK
     Dates: start: 201702, end: 20180312
  19. CARDILOC [Concomitant]
     Active Substance: BISOPROLOL FUMARATE
     Dosage: 2.5 MG, UNK
     Dates: start: 2015
  20. ZAROXOLYN [Concomitant]
     Active Substance: METOLAZONE
     Dosage: 5 MG, UNK
     Dates: start: 20170903
  21. ALPHA D3 [Concomitant]
     Active Substance: ALFACALCIDOL
     Dosage: UNK
     Dates: start: 20180128, end: 20180128
  22. REPAGLINIDE. [Concomitant]
     Active Substance: REPAGLINIDE
     Dosage: UNK
     Dates: start: 2016
  23. FUSID [Concomitant]
     Active Substance: FUROSEMIDE
     Dosage: UNK
     Dates: start: 2014, end: 20180516
  24. VASPID [Concomitant]
     Dosage: UNK
     Dates: start: 2014, end: 20170315
  25. REVATIO [Concomitant]
     Active Substance: SILDENAFIL CITRATE
     Dosage: UNK
     Dates: start: 20180123
  26. UPTRAVI [Suspect]
     Active Substance: SELEXIPAG
     Indication: PULMONARY ARTERIAL HYPERTENSION
     Dosage: 200 MCG, BID
     Route: 048
     Dates: start: 20180503, end: 20180510
  27. UPTRAVI [Suspect]
     Active Substance: SELEXIPAG
     Dosage: 600 MCG, BID
     Route: 048
     Dates: start: 20180517
  28. ZAROXOLYN [Concomitant]
     Active Substance: METOLAZONE
     Dosage: 5 MG, UNK
     Dates: start: 20170413, end: 20170902
  29. ROCEPHINE [Concomitant]
     Active Substance: CEFTRIAXONE SODIUM
     Dosage: UNK
     Dates: start: 20180122, end: 20180125
  30. ALDACTONE [Concomitant]
     Active Substance: SPIRONOLACTONE
     Dosage: UNK
     Dates: start: 20180313, end: 20180322
  31. SILDENAFIL CITRATE. [Concomitant]
     Active Substance: SILDENAFIL CITRATE
  32. CLEXANE [Concomitant]
     Active Substance: ENOXAPARIN SODIUM
     Dosage: UNK
     Dates: start: 2015
  33. VASODIP [Concomitant]
     Active Substance: LERCANIDIPINE HYDROCHLORIDE
     Dosage: UNK
     Dates: start: 2014, end: 20170315

REACTIONS (16)
  - Concomitant disease aggravated [Recovering/Resolving]
  - Vomiting [Not Recovered/Not Resolved]
  - Localised oedema [Recovering/Resolving]
  - Weight decreased [Recovering/Resolving]
  - Haemoglobin decreased [Unknown]
  - Blood creatinine increased [Unknown]
  - Nausea [Not Recovered/Not Resolved]
  - Transfusion [Unknown]
  - Metabolic acidosis [Unknown]
  - Oedema peripheral [Recovering/Resolving]
  - Gastritis [Unknown]
  - Acute kidney injury [Unknown]
  - Dyspnoea exertional [Recovering/Resolving]
  - Pulmonary oedema [Unknown]
  - Diarrhoea [Recovered/Resolved]
  - Iron deficiency anaemia [Unknown]

NARRATIVE: CASE EVENT DATE: 2018
